FAERS Safety Report 14599111 (Version 4)
Quarter: 2019Q2

REPORT INFORMATION
  Report Type: Report from Study
  Country: US (occurrence: US)
  Receive Date: 20180305
  Receipt Date: 20190507
  Transmission Date: 20190711
  Serious: Yes (Other)
  Sender: FDA-Public Use
  Company Number: US-TAKEDA-2018TUS005143

PATIENT
  Age: 24 Year
  Sex: Female

DRUGS (2)
  1. PONATINIB [Suspect]
     Active Substance: PONATINIB
     Indication: CHRONIC MYELOID LEUKAEMIA
     Dosage: 30 MG, QD
     Route: 048
     Dates: start: 20170724
  2. PONATINIB [Suspect]
     Active Substance: PONATINIB
     Dosage: 15 MILLIGRAM, QD
     Route: 048

REACTIONS (14)
  - Anxiety [Unknown]
  - Vulvovaginal pain [Unknown]
  - Hypothyroidism [Unknown]
  - Neuropathy peripheral [Unknown]
  - Graft versus host disease in skin [Recovered/Resolved]
  - Rash pustular [Recovering/Resolving]
  - Fatigue [Unknown]
  - Nausea [Unknown]
  - Pain [Unknown]
  - Joint stiffness [Unknown]
  - Erythema [Unknown]
  - Decreased appetite [Unknown]
  - Graft versus host disease in gastrointestinal tract [Recovered/Resolved]
  - Constipation [Unknown]

NARRATIVE: CASE EVENT DATE: 20171123
